FAERS Safety Report 18712905 (Version 10)
Quarter: 2021Q2

REPORT INFORMATION
  Report Type: Report from Study
  Country: GR (occurrence: GR)
  Receive Date: 20210107
  Receipt Date: 20210504
  Transmission Date: 20210717
  Serious: Yes (Hospitalization, Other)
  Sender: FDA-Public Use
  Company Number: GR-AMGEN-GRCCT2021000866

PATIENT
  Age: 61 Year
  Sex: Male

DRUGS (33)
  1. CARFILZOMIB [Suspect]
     Active Substance: CARFILZOMIB
     Dosage: 45 MILLIGRAM/SQ. METER, PER CHEMO REGIM
     Route: 065
     Dates: start: 20210119
  2. RINGER LACTATE [SODIUM LACTATE] [Concomitant]
     Active Substance: SODIUM LACTATE
     Indication: NEPHROTIC SYNDROME
     Dosage: 1000 MILLILITER, QD (9 DAYS)
     Route: 042
     Dates: start: 20201230, end: 20210108
  3. NORMAL SALINE [Concomitant]
     Active Substance: SODIUM CHLORIDE
     Indication: DEHYDRATION
  4. ONE ALPHA [Concomitant]
     Active Substance: ALFACALCIDOL
     Indication: HYPOCALCAEMIA
     Dosage: 0.25 MICROGRAM, QD
     Dates: start: 20201230, end: 20210108
  5. ZOMETA [Concomitant]
     Active Substance: ZOLEDRONIC ACID
     Indication: PLASMA CELL MYELOMA
     Dosage: 3 MILLIGRAM, QD
     Dates: start: 20201222
  6. SODIUM CHLORIDE. [Concomitant]
     Active Substance: SODIUM CHLORIDE
     Dosage: UNK
  7. CALCIUM CHLORIDE DIHYDRATE [Concomitant]
     Active Substance: CALCIUM CHLORIDE
     Dosage: UNK
  8. CARFILZOMIB [Suspect]
     Active Substance: CARFILZOMIB
     Dosage: UNK UNK, PER CHEMO REGIM
     Route: 065
  9. CARFILZOMIB [Suspect]
     Active Substance: CARFILZOMIB
     Dosage: 56 MILLIGRAM/SQ. METER, PER CHEMO REGIM
     Route: 065
  10. ONE ALPHA [Concomitant]
     Active Substance: ALFACALCIDOL
     Indication: NEPHROTIC SYNDROME
  11. MAALOX [ALUMINIUM HYDROXIDE;MAGNESIUM HYDROXIDE] [Concomitant]
     Dosage: UNK
     Dates: start: 20201225
  12. NEXIUM I.V. [Concomitant]
     Active Substance: ESOMEPRAZOLE SODIUM
     Dosage: UNK
     Dates: start: 20201224
  13. NEBIVOLOL HYDROCHLORIDE [Concomitant]
     Active Substance: NEBIVOLOL HYDROCHLORIDE
     Dosage: UNK
  14. CALCIUM PHOSPHATE [Concomitant]
     Active Substance: CALCIUM PHOSPHATE
     Dosage: UNK
  15. LOBIVON [Concomitant]
     Active Substance: NEBIVOLOL HYDROCHLORIDE
     Indication: ATRIAL FIBRILLATION
     Dosage: 1.25 MILLIGRAM, QD
     Dates: start: 20201231
  16. POTASSIUM CHLORIDE. [Concomitant]
     Active Substance: POTASSIUM CHLORIDE
     Dosage: UNK
  17. APOTEL [Concomitant]
     Active Substance: ACETAMINOPHEN
     Indication: PROPHYLAXIS
     Dosage: UNK
     Dates: start: 20201215
  18. LENALIDOMIDE [Suspect]
     Active Substance: LENALIDOMIDE
     Dosage: UNK UNK, PER CHEMO REGIM
     Route: 065
     Dates: start: 20201229
  19. LENALIDOMIDE [Suspect]
     Active Substance: LENALIDOMIDE
     Dosage: 15 MILLIGRAM, PER CHEMO REGIM
     Route: 065
     Dates: start: 20210119
  20. RINGER LACTATE [SODIUM LACTATE] [Concomitant]
     Active Substance: SODIUM LACTATE
     Indication: RENAL IMPAIRMENT
  21. DEXAMETHASONE. [Suspect]
     Active Substance: DEXAMETHASONE
     Indication: PLASMA CELL MYELOMA
     Dosage: 40 MILLIGRAM, PER CHEMO REGIM
     Route: 048
     Dates: start: 20201229
  22. CALCIORAL [CALCIUM CARBONATE] [Concomitant]
     Active Substance: CALCIUM CARBONATE
     Indication: NEPHROTIC SYNDROME
  23. NORMAL SALINE [Concomitant]
     Active Substance: SODIUM CHLORIDE
     Indication: RENAL IMPAIRMENT
  24. INNOHEP [Concomitant]
     Active Substance: TINZAPARIN SODIUM
     Indication: PROPHYLAXIS
     Dosage: UNK
     Dates: start: 20201222, end: 20210107
  25. LENALIDOMIDE [Suspect]
     Active Substance: LENALIDOMIDE
     Indication: PLASMA CELL MYELOMA
     Dosage: 10 MILLIGRAM, PER CHEMO REGIM
     Route: 065
     Dates: start: 20201222
  26. CALCIORAL [CALCIUM CARBONATE] [Concomitant]
     Active Substance: CALCIUM CARBONATE
     Indication: HYPOCALCAEMIA
     Dosage: 500 MILLIGRAM, QD
     Dates: start: 20201229, end: 20210108
  27. RINGER LACTATE [SODIUM LACTATE] [Concomitant]
     Active Substance: SODIUM LACTATE
     Indication: DEHYDRATION
  28. LOBIVON [Concomitant]
     Active Substance: NEBIVOLOL HYDROCHLORIDE
     Indication: NEPHROTIC SYNDROME
  29. ERGOCALCIFEROL. [Concomitant]
     Active Substance: ERGOCALCIFEROL
     Dosage: UNK
  30. SODIUM LACTATE. [Concomitant]
     Active Substance: SODIUM LACTATE
     Dosage: UNK
  31. FENISTIL [Concomitant]
     Active Substance: DIMETHINDENE
     Indication: PROPHYLAXIS
     Dosage: UNK
     Dates: start: 20201215
  32. CARFILZOMIB [Suspect]
     Active Substance: CARFILZOMIB
     Indication: PLASMA CELL MYELOMA
     Dosage: 20 MILLIGRAM/SQ. METER, PER CHEMO REGIM
     Route: 065
     Dates: start: 20201229
  33. NORMAL SALINE [Concomitant]
     Active Substance: SODIUM CHLORIDE
     Indication: NEPHROTIC SYNDROME
     Dosage: 1000 MILLILITER, QD AND 500  MILLILITER QD
     Route: 042
     Dates: start: 20201230, end: 20210108

REACTIONS (1)
  - Nephrotic syndrome [Recovered/Resolved with Sequelae]

NARRATIVE: CASE EVENT DATE: 20210103
